FAERS Safety Report 24417875 (Version 1)
Quarter: 2024Q4

REPORT INFORMATION
  Report Type: Spontaneous
  Country: KW (occurrence: KW)
  Receive Date: 20241009
  Receipt Date: 20241009
  Transmission Date: 20250115
  Serious: Yes (Other)
  Sender: AMERICAN REGENT
  Company Number: KW-AMERICAN REGENT INC-2024003766

PATIENT
  Age: 30 Year
  Sex: Female

DRUGS (2)
  1. FERINJECT [Suspect]
     Active Substance: FERRIC CARBOXYMALTOSE
     Indication: Iron deficiency
     Dosage: 1000 MG DILUTED IN 250 ML OF SODIUM CHLORIDE (NACL) (1000 MG,1 IN 1 WK)
  2. FERINJECT [Suspect]
     Active Substance: FERRIC CARBOXYMALTOSE
     Indication: Iron deficiency anaemia

REACTIONS (2)
  - Lymphadenopathy [Recovered/Resolved]
  - Influenza like illness [Recovered/Resolved]
